FAERS Safety Report 21617136 (Version 3)
Quarter: 2023Q2

REPORT INFORMATION
  Report Type: Spontaneous
  Country: US (occurrence: US)
  Receive Date: 20221118
  Receipt Date: 20230612
  Transmission Date: 20230722
  Serious: Yes (Other)
  Sender: FDA-Public Use
  Company Number: US-THERATECHNOLOGIES INC.-2022-THE-TES-000320

PATIENT

DRUGS (1)
  1. EGRIFTA SV [Suspect]
     Active Substance: TESAMORELIN ACETATE
     Indication: Lipodystrophy acquired
     Dosage: 0.35 ML, QD
     Route: 058
     Dates: start: 202109, end: 20230501

REACTIONS (3)
  - Metabolic surgery [Not Recovered/Not Resolved]
  - Treatment noncompliance [Unknown]
  - Drug titration error [Not Recovered/Not Resolved]

NARRATIVE: CASE EVENT DATE: 20230501
